FAERS Safety Report 4673248-9 (Version None)
Quarter: 2005Q2

REPORT INFORMATION
  Report Type: 
  Country: None (occurrence: None)
  Receive Date: 20050525
  Receipt Date: 20050518
  Transmission Date: 20051028
  Serious: Yes (Other)
  Sender: FDA-Public Use
  Company Number: 200514321US

PATIENT
  Sex: 0

DRUGS (1)
  1. LOVENOX [Suspect]
     Indication: DEEP VEIN THROMBOSIS
     Dosage: DOSE: UNK

REACTIONS (2)
  - FLUID RETENTION [None]
  - WEIGHT INCREASED [None]
